FAERS Safety Report 6927873-2 (Version None)
Quarter: 2010Q3

REPORT INFORMATION
  Report Type: 
  Country: None (occurrence: None)
  Receive Date: 20100817
  Receipt Date: 20100805
  Transmission Date: 20110219
  Serious: Yes (Other)
  Sender: FDA-Public Use
  Company Number: NL-PFIZER INC-2010098371

PATIENT
  Age: 80 Year
  Sex: Female

DRUGS (13)
  1. ECALTA [Suspect]
     Indication: PERITONITIS
     Dosage: 200 MG, UNK
     Route: 042
  2. NEXIUM [Concomitant]
  3. MOVICOLON [Concomitant]
  4. FRAGMIN [Concomitant]
  5. CORDARONE [Concomitant]
  6. FUROSEMIDE [Concomitant]
  7. HYDROCORTISON [Concomitant]
  8. CIPROFLOXACIN [Concomitant]
  9. METRONIDAZOLE [Concomitant]
  10. PARACETAMOL [Concomitant]
  11. OXAZEPAM [Concomitant]
  12. BERODUAL [Concomitant]
  13. STOMATOLOGICALS, MOUTH PREPARATIONS [Concomitant]

REACTIONS (1)
  - MYOCLONIC EPILEPSY [None]
